FAERS Safety Report 11400948 (Version 1)
Quarter: 2015Q3

REPORT INFORMATION
  Report Type: Spontaneous
  Country: US (occurrence: US)
  Receive Date: 20150820
  Receipt Date: 20150820
  Transmission Date: 20151125
  Serious: No
  Sender: FDA-Public Use
  Company Number: US-JNJFOC-20150814295

PATIENT
  Sex: Male

DRUGS (6)
  1. DURAGESIC [Suspect]
     Active Substance: FENTANYL
     Indication: ARTHRITIS
     Route: 062
     Dates: start: 20150811
  2. DURAGESIC [Suspect]
     Active Substance: FENTANYL
     Indication: INTERVERTEBRAL DISC DISORDER
     Route: 062
     Dates: start: 20150811
  3. DURAGESIC [Suspect]
     Active Substance: FENTANYL
     Indication: SCIATICA
     Route: 062
     Dates: start: 20150811
  4. DURAGESIC [Suspect]
     Active Substance: FENTANYL
     Indication: BACK DISORDER
     Route: 062
     Dates: start: 20150811
  5. DURAGESIC [Suspect]
     Active Substance: FENTANYL
     Indication: PAIN
     Route: 062
     Dates: start: 20150811
  6. DURAGESIC [Suspect]
     Active Substance: FENTANYL
     Indication: FIBROMYALGIA
     Route: 062
     Dates: start: 20150811

REACTIONS (3)
  - Product quality issue [Not Recovered/Not Resolved]
  - Drug dose omission [Not Recovered/Not Resolved]
  - Wrong technique in product usage process [Unknown]

NARRATIVE: CASE EVENT DATE: 2015
